FAERS Safety Report 5766016-8 (Version None)
Quarter: 2008Q2

REPORT INFORMATION
  Report Type: 
  Country: None (occurrence: None)
  Receive Date: 20080606
  Receipt Date: 20080602
  Transmission Date: 20081010
  Serious: Yes (Other)
  Sender: FDA-Public Use
  Company Number: 028547

PATIENT
  Age: 16 Year
  Sex: Female
  Weight: 59 kg

DRUGS (2)
  1. PLAN B [Suspect]
     Dosage: 2 TABLET, SINGLE, ORAL
     Route: 048
     Dates: start: 20080401, end: 20080401
  2. DEPO-PROVERA [Concomitant]

REACTIONS (4)
  - ABORTION SPONTANEOUS [None]
  - DRUG EXPOSURE DURING PREGNANCY [None]
  - MATERNAL DRUGS AFFECTING FOETUS [None]
  - PREGNANCY ON CONTRACEPTIVE [None]
